FAERS Safety Report 22909787 (Version 17)
Quarter: 2024Q3

REPORT INFORMATION
  Report Type: Spontaneous
  Country: CA (occurrence: CA)
  Receive Date: 20230906
  Receipt Date: 20240726
  Transmission Date: 20241016
  Serious: Yes (Hospitalization, Other)
  Sender: CELLTRION
  Company Number: CA-CELLTRION INC.-2023CA017286

PATIENT

DRUGS (17)
  1. INFLECTRA [Suspect]
     Active Substance: INFLIXIMAB-DYYB
     Indication: Crohn^s disease
     Dosage: 300 MG, W0, 2 6 AND Q8 WEEKS (MAINTENANCE: 300MG EVERY 8 WEEKS FOR 24 MONTHS)
     Route: 042
     Dates: start: 20230826, end: 20240123
  2. INFLECTRA [Suspect]
     Active Substance: INFLIXIMAB-DYYB
     Dosage: 300 MG, W0, 2 6 AND Q8 WEEKS (1 WEEK AND 6 DAYS)
     Route: 042
     Dates: start: 20230908
  3. INFLECTRA [Suspect]
     Active Substance: INFLIXIMAB-DYYB
     Dosage: 300 MG, W0, 2 6 AND Q8 WEEKS (3 WEEKS AND 6 DAYS)
     Route: 042
     Dates: start: 20231005
  4. INFLECTRA [Suspect]
     Active Substance: INFLIXIMAB-DYYB
     Dosage: 300 MG, EVERY 8 WEEKS
     Route: 042
     Dates: start: 20231128
  5. INFLECTRA [Suspect]
     Active Substance: INFLIXIMAB-DYYB
     Dosage: 300 MG, EVERY 8 WEEKS
     Route: 042
     Dates: start: 20240123
  6. INFLECTRA [Suspect]
     Active Substance: INFLIXIMAB-DYYB
     Dosage: 300 MG, W0, 2 6 AND Q8 WEEKS (MAINTENANCE: 300MG EVERY 8 WEEKS FOR 24 MONTHS)
     Route: 042
     Dates: start: 202402, end: 202402
  7. INFLECTRA [Suspect]
     Active Substance: INFLIXIMAB-DYYB
     Dosage: 1 DF , DOSAGE INFO: UNKNOWNRESCUE DOSE
     Route: 042
     Dates: start: 202403, end: 202403
  8. INFLECTRA [Suspect]
     Active Substance: INFLIXIMAB-DYYB
     Dosage: 600 MG, EVERY 8 WEEKS
     Route: 042
     Dates: start: 20240319, end: 20240319
  9. INFLECTRA [Suspect]
     Active Substance: INFLIXIMAB-DYYB
     Dosage: 600 MG, EVERY 8 WEEKS
     Route: 042
     Dates: start: 20240319, end: 20240319
  10. INFLECTRA [Suspect]
     Active Substance: INFLIXIMAB-DYYB
     Dosage: 600 MG, EVERY 6 WEEKS (7 WEEKS AND 2 DAYS (WITHIN RANGE +10 DAYS)
     Route: 042
     Dates: start: 20240509
  11. INFLECTRA [Suspect]
     Active Substance: INFLIXIMAB-DYYB
     Dosage: 600 MG, EVERY 6 WEEKS (7 WEEKS AND 2 DAYS (WITHIN RANGE +10 DAYS)
     Route: 042
     Dates: start: 20240509
  12. INFLECTRA [Suspect]
     Active Substance: INFLIXIMAB-DYYB
     Dosage: 1 DF, DOSAGE INFO: UNKNOWNRESCUE DOSE
     Route: 042
     Dates: start: 202405, end: 202405
  13. INFLECTRA [Suspect]
     Active Substance: INFLIXIMAB-DYYB
     Dosage: 600 MG, AFTER 6 WEEKS, DOSE INCOMPLETE
     Route: 042
     Dates: start: 20240617, end: 20240617
  14. INFLECTRA [Suspect]
     Active Substance: INFLIXIMAB-DYYB
     Dosage: 600 MG, AFTER 6 WEEKS, DOSE INCOMPLETE
     Route: 042
     Dates: start: 20240617, end: 20240617
  15. INFLECTRA [Suspect]
     Active Substance: INFLIXIMAB-DYYB
     Dosage: 600 MG AT 10 DAYS ( EVERY 7 WEEKS)
     Route: 042
     Dates: start: 20240627
  16. MESALAMINE [Concomitant]
     Active Substance: MESALAMINE
     Dosage: 1 DF
  17. PREDNISONE [Concomitant]
     Active Substance: PREDNISONE
     Dosage: 1 DF

REACTIONS (28)
  - Illness [Unknown]
  - Condition aggravated [Recovering/Resolving]
  - Arrhythmia [Not Recovered/Not Resolved]
  - Pyrexia [Recovering/Resolving]
  - Therapeutic response shortened [Unknown]
  - Drug level below therapeutic [Not Recovered/Not Resolved]
  - Pruritus [Recovered/Resolved with Sequelae]
  - Anal fissure [Recovered/Resolved]
  - Weight increased [Recovered/Resolved]
  - Weight decreased [Unknown]
  - Arthralgia [Recovered/Resolved]
  - Alopecia [Recovered/Resolved with Sequelae]
  - Lethargy [Unknown]
  - Aphthous ulcer [Recovered/Resolved]
  - Fistula [Recovered/Resolved]
  - Mouth ulceration [Not Recovered/Not Resolved]
  - Arthralgia [Not Recovered/Not Resolved]
  - Anal fissure [Recovered/Resolved]
  - Injection site injury [Unknown]
  - Urticaria [Not Recovered/Not Resolved]
  - Lip swelling [Recovered/Resolved]
  - Infusion related reaction [Unknown]
  - Food allergy [Unknown]
  - Inappropriate schedule of product administration [Unknown]
  - Off label use [Unknown]
  - Off label use [Unknown]
  - Off label use [Unknown]
  - Intentional product use issue [Unknown]

NARRATIVE: CASE EVENT DATE: 20230101
